FAERS Safety Report 9444083 (Version 1)
Quarter: 2013Q3

REPORT INFORMATION
  Report Type: Spontaneous
  Country: GB (occurrence: GB)
  Receive Date: 20130807
  Receipt Date: 20130807
  Transmission Date: 20140515
  Serious: Yes (Other)
  Sender: FDA-Public Use
  Company Number: GB-RANBAXY-2013R1-71924

PATIENT
  Age: 47 Year
  Sex: Male

DRUGS (4)
  1. RITONAVIR/LOPINAVIR [Suspect]
     Indication: ANTIRETROVIRAL THERAPY
     Dosage: 400MG/100MG, BID
     Route: 065
  2. TRIAMCINOLONE [Interacting]
     Indication: TENDON RUPTURE
     Dosage: UNK
     Route: 014
  3. BUPIVACAINE [Concomitant]
     Indication: TENDON RUPTURE
     Dosage: UNK
     Route: 014
  4. LIDOCAINE [Concomitant]
     Indication: TENDON RUPTURE
     Dosage: UNK
     Route: 014

REACTIONS (2)
  - Drug interaction [Recovered/Resolved]
  - Adrenal suppression [Recovered/Resolved]
